FAERS Safety Report 8397437-5 (Version None)
Quarter: 2012Q2

REPORT INFORMATION
  Report Type: 
  Country: None (occurrence: None)
  Receive Date: 20120529
  Receipt Date: 20120529
  Transmission Date: 20120825
  Serious: Yes (Other)
  Sender: FDA-Public Use
  Company Number: None

PATIENT
  Age: 65 Year
  Sex: Female
  Weight: 77.1115 kg

DRUGS (1)
  1. BOTOX [Suspect]
     Indication: MULTIPLE SCLEROSIS
     Dosage: 200IU 90 DAYS IM
     Route: 030
     Dates: start: 20080101, end: 20111202

REACTIONS (2)
  - NEUROPATHY PERIPHERAL [None]
  - PAIN [None]
